FAERS Safety Report 20125372 (Version 1)
Quarter: 2021Q4

REPORT INFORMATION
  Report Type: Spontaneous
  Country: FR (occurrence: FR)
  Receive Date: 20211129
  Receipt Date: 20211129
  Transmission Date: 20220304
  Serious: Yes (Disabling, Congenital Anomaly, Other)
  Sender: FDA-Public Use
  Company Number: FR-ABBVIE-21K-056-4175896-00

PATIENT
  Weight: 1.98 kg

DRUGS (10)
  1. VALPROATE SODIUM [Suspect]
     Active Substance: VALPROATE SODIUM
     Indication: Maternal exposure timing unspecified
     Route: 064
  2. FOLIC ACID [Concomitant]
     Active Substance: FOLIC ACID
     Indication: Product used for unknown indication
  3. CHOLECALCIFEROL [Concomitant]
     Active Substance: CHOLECALCIFEROL
     Indication: Product used for unknown indication
  4. POLYETHYLENE GLYCOL 4000 [Concomitant]
     Active Substance: POLYETHYLENE GLYCOL 4000
     Indication: Product used for unknown indication
  5. ALBUTEROL SULFATE [Concomitant]
     Active Substance: ALBUTEROL SULFATE
     Indication: Product used for unknown indication
  6. ADALATE LA [Concomitant]
     Indication: Product used for unknown indication
  7. UTROGESTAN [Concomitant]
     Active Substance: PROGESTERONE
     Indication: Product used for unknown indication
  8. TRIMEBUTINE [Concomitant]
     Active Substance: TRIMEBUTINE
     Indication: Product used for unknown indication
  9. ADALATE LA [Concomitant]
     Indication: Product used for unknown indication
  10. FOLIC ACID [Concomitant]
     Active Substance: FOLIC ACID
     Indication: Product used for unknown indication

REACTIONS (31)
  - Rhinitis [Unknown]
  - Scoliosis [Unknown]
  - Epilepsy [Unknown]
  - Autism spectrum disorder [Unknown]
  - Dysmorphism [Unknown]
  - Plagiocephaly [Unknown]
  - Spine malformation [Unknown]
  - Hypotonia [Unknown]
  - Speech disorder developmental [Unknown]
  - Language disorder [Unknown]
  - Disturbance in attention [Unknown]
  - Developmental delay [Unknown]
  - Aphasia [Unknown]
  - Cognitive disorder [Unknown]
  - Time perception altered [Unknown]
  - Learning disorder [Unknown]
  - Gait disturbance [Unknown]
  - Visual impairment [Unknown]
  - Hypokinesia [Unknown]
  - Memory impairment [Unknown]
  - Neonatal respiratory distress [Unknown]
  - Frustration tolerance decreased [Unknown]
  - Bronchiolitis [Unknown]
  - Bronchitis [Unknown]
  - Fatigue [Unknown]
  - Auditory disorder [Unknown]
  - Phobia [Unknown]
  - Anxiety [Unknown]
  - Panic disorder [Unknown]
  - Enuresis [Unknown]
  - Foetal exposure during pregnancy [Unknown]
